FAERS Safety Report 5947095-1 (Version None)
Quarter: 2008Q4

REPORT INFORMATION
  Report Type: 
  Country: None (occurrence: None)
  Receive Date: 20081110
  Receipt Date: 20081104
  Transmission Date: 20090506
  Serious: Yes (Life-Threatening)
  Sender: FDA-Public Use
  Company Number: IT-ASTRAZENECA-2008SE04623

PATIENT
  Age: 13831 Day
  Sex: Female

DRUGS (3)
  1. ESOPRAL [Suspect]
     Indication: ABDOMINAL PAIN UPPER
     Route: 048
     Dates: start: 20080916, end: 20080916
  2. MOMENT [Suspect]
     Indication: ABDOMINAL PAIN
     Route: 048
     Dates: start: 20080916, end: 20080916
  3. TAREG [Concomitant]
     Indication: ESSENTIAL HYPERTENSION
     Route: 048
     Dates: start: 20080906, end: 20080916

REACTIONS (5)
  - HYPERSENSITIVITY [None]
  - HYPOTENSION [None]
  - PRURITUS [None]
  - RASH [None]
  - SYNCOPE [None]
